FAERS Safety Report 7413673-6 (Version None)
Quarter: 2011Q2

REPORT INFORMATION
  Report Type: 
  Country: None (occurrence: None)
  Receive Date: 20110413
  Receipt Date: 20110411
  Transmission Date: 20111010
  Serious: Yes (Life-Threatening)
  Sender: FDA-Public Use
  Company Number: US-BAYER-2011-031428

PATIENT
  Sex: Female

DRUGS (2)
  1. OCELLA [Suspect]
     Dosage: UNK
     Dates: start: 20080701, end: 20090701
  2. YASMIN [Suspect]
     Dosage: UNK
     Dates: start: 20050401, end: 20080701

REACTIONS (1)
  - PULMONARY EMBOLISM [None]
